FAERS Safety Report 25003022 (Version 1)
Quarter: 2025Q1

REPORT INFORMATION
  Report Type: Spontaneous
  Country: NL (occurrence: None)
  Receive Date: 20250224
  Receipt Date: 20250224
  Transmission Date: 20250409
  Serious: No
  Sender: ALEXION PHARMACEUTICALS
  Company Number: None

PATIENT
  Age: 43 Year

DRUGS (5)
  1. NEXIUM [Suspect]
     Active Substance: ESOMEPRAZOLE MAGNESIUM
     Indication: Retinitis
     Dosage: 1D1T
  2. VALACYCLOVIR HYDROCHLORIDE [Suspect]
     Active Substance: VALACYCLOVIR HYDROCHLORIDE
     Indication: Retinitis
     Dosage: 500 MILLIGRAM, BID
  3. PREDNISOLONE [Suspect]
     Active Substance: PREDNISOLONE
     Indication: Retinitis
     Dosage: 40 MILLIGRAM, QD
  4. ALENDRONATE SODIUM [Concomitant]
     Active Substance: ALENDRONATE SODIUM
  5. ZOPICLONE [Concomitant]
     Active Substance: ZOPICLONE
     Dosage: 1D1T

REACTIONS (1)
  - Tinnitus [Unknown]
